FAERS Safety Report 8808340 (Version 1)
Quarter: 2012Q4

REPORT INFORMATION
  Report Type: 
  Country: BR (occurrence: BR)
  Receive Date: 20120926
  Receipt Date: 20120926
  Transmission Date: 20130627
  Serious: Yes (Other)
  Sender: FDA-Public Use
  Company Number: BR-AMGEN-BRASP2012060078

PATIENT
  Age: 48 Year
  Sex: Male
  Weight: 82 kg

DRUGS (6)
  1. ENBREL [Suspect]
     Indication: PSORIASIS
     Dosage: 50.0 mg, weekly
     Route: 058
     Dates: start: 200706
  2. ENBREL [Suspect]
     Dosage: 100 mg, 2x/day
     Dates: start: 20120506
  3. ASPIRIN [Concomitant]
     Dosage: UNK
     Route: 065
  4. ATENOLOL [Concomitant]
     Dosage: UNK UNK, UNK
     Route: 065
  5. METHOTREXATE [Concomitant]
     Dosage: UNK
     Route: 065
  6. VASILIP [Concomitant]
     Dosage: UNK
     Route: 065

REACTIONS (8)
  - Pyrexia [Not Recovered/Not Resolved]
  - Dizziness [Not Recovered/Not Resolved]
  - Headache [Not Recovered/Not Resolved]
  - Diarrhoea [Not Recovered/Not Resolved]
  - Blood uric acid increased [Not Recovered/Not Resolved]
  - Blood triglycerides increased [Not Recovered/Not Resolved]
  - Off label use [Not Recovered/Not Resolved]
  - Convulsion [Not Recovered/Not Resolved]
